FAERS Safety Report 18148539 (Version 1)
Quarter: 2020Q3

REPORT INFORMATION
  Report Type: Spontaneous
  Country: DE (occurrence: DE)
  Receive Date: 20200814
  Receipt Date: 20200814
  Transmission Date: 20201103
  Serious: Yes (Hospitalization)
  Sender: FDA-Public Use
  Company Number: DE-TEVA-2020-DE-1813570

PATIENT
  Age: 86 Year
  Sex: Female
  Weight: 110 kg

DRUGS (11)
  1. ESCITALOPRAM [Concomitant]
     Active Substance: ESCITALOPRAM OXALATE
     Dosage: .5 DOSAGE FORMS DAILY; 20 MG, 0.5?0?0?0
     Route: 048
  2. ACETYLSALICYLSAURE [Concomitant]
     Active Substance: ASPIRIN
     Dosage: 100 MILLIGRAM DAILY; 1?0?0?0
     Route: 048
  3. BISOPROLOL [Suspect]
     Active Substance: BISOPROLOL
     Dosage: 5 MILLIGRAM DAILY;  0?0?1?0
     Route: 048
  4. METAMIZOL [Concomitant]
     Active Substance: METAMIZOLE SODIUM
     Dosage: 2000 MILLIGRAM DAILY; 1?1?1?1
     Route: 048
  5. BUDESONID [Concomitant]
     Active Substance: BUDESONIDE
     Dosage: 200 MICROGRAM DAILY; 1?0?0?0
     Route: 055
  6. NALOXON/OXYCODON [Suspect]
     Active Substance: NALOXONE HYDROCHLORIDE\OXYCODONE HYDROCHLORIDE
     Dosage: 2 DOSAGE FORMS DAILY; 5|10 MG, 1?0?1?0
     Route: 048
  7. TORASEMID [Suspect]
     Active Substance: TORSEMIDE
     Dosage: .5 DOSAGE FORMS DAILY; 10 MG, 0.5?0?0?0
     Route: 048
  8. PANTOPRAZOL [Concomitant]
     Active Substance: PANTOPRAZOLE SODIUM
     Dosage: 40 MILLIGRAM DAILY; 1?0?0?0
     Route: 048
  9. SPIOLTO RESPIMAT 2,5MIKROGRAMM/2,5MIKROGRAMM [Concomitant]
     Dosage: 2 DOSAGE FORMS DAILY; 2.5|2.5 MG, 2?0?0?0
     Route: 048
  10. LERCANIDIPIN [Suspect]
     Active Substance: LERCANIDIPINE
     Dosage: 10 MILLIGRAM DAILY; 1?0?0?0
     Route: 048
  11. SALBUTAMOL [Concomitant]
     Active Substance: ALBUTEROL
     Dosage: 400 MICROGRAM DAILY; 1?1?1?1, METERED DOSE AEROSOL
     Route: 055

REACTIONS (3)
  - Musculoskeletal pain [Unknown]
  - Fall [Unknown]
  - Fracture [Unknown]
